FAERS Safety Report 4421286-3 (Version None)
Quarter: 2004Q3

REPORT INFORMATION
  Report Type: 
  Country: None (occurrence: None)
  Receive Date: 20040804
  Receipt Date: 20040720
  Transmission Date: 20050211
  Serious: Yes (Other)
  Sender: FDA-Public Use
  Company Number: S03-FRA-00523-01

PATIENT
  Age: 23 Year
  Sex: Female

DRUGS (4)
  1. SEROPLEX (ESCITALOPRAM) [Suspect]
     Indication: DEPRESSION
     Dosage: 10 MG QD PO
     Route: 048
     Dates: start: 20021213, end: 20021219
  2. XANAX [Concomitant]
  3. STILNOX (ZOLPIDEM) [Concomitant]
  4. IMOVANE (ZOPICLONE) [Concomitant]

REACTIONS (3)
  - GLYCOSURIA [None]
  - HYPERGLYCAEMIA [None]
  - KETONURIA [None]
